FAERS Safety Report 13896566 (Version 3)
Quarter: 2017Q3

REPORT INFORMATION
  Report Type: Spontaneous
  Country: US (occurrence: US)
  Receive Date: 20170823
  Receipt Date: 20170929
  Transmission Date: 20171127
  Serious: No
  Sender: FDA-Public Use
  Company Number: US-SUNOVION-2017SUN003684

PATIENT

DRUGS (3)
  1. CANNABIS INDICA [Concomitant]
  2. LATUDA [Suspect]
     Active Substance: LURASIDONE HYDROCHLORIDE
     Dosage: 20 MG, UNK
     Route: 048
  3. LATUDA [Suspect]
     Active Substance: LURASIDONE HYDROCHLORIDE
     Dosage: 60 MG, UNK
     Route: 048

REACTIONS (17)
  - Feeling of despair [Unknown]
  - Akathisia [Recovered/Resolved]
  - Heart rate increased [Unknown]
  - Feeling abnormal [Unknown]
  - Depression [Unknown]
  - Restlessness [Recovered/Resolved]
  - Fatigue [Unknown]
  - Somnolence [Unknown]
  - Feeling hot [Unknown]
  - Illness anxiety disorder [Unknown]
  - Asthenia [Unknown]
  - Chest discomfort [Unknown]
  - Fear [Unknown]
  - Anxiety [Unknown]
  - Panic attack [Unknown]
  - Insomnia [Unknown]
  - Mania [Unknown]

NARRATIVE: CASE EVENT DATE: 201708
